FAERS Safety Report 5268662-7 (Version None)
Quarter: 2007Q1

REPORT INFORMATION
  Report Type: 
  Country: None (occurrence: None)
  Receive Date: 20061213
  Receipt Date: 20040827
  Transmission Date: 20070707
  Serious: Yes (Other)
  Sender: FDA-Public Use
  Company Number: 2004UW18213

PATIENT
  Age: 87 Year
  Sex: Female
  Weight: 72.5755 kg

DRUGS (2)
  1. IRESSA [Suspect]
     Indication: BRONCHIOLOALVEOLAR CARCINOMA
  2. UNSPECIFIED [Concomitant]

REACTIONS (2)
  - CELLULITIS [None]
  - RASH [None]
